FAERS Safety Report 23842271 (Version 1)
Quarter: 2024Q2

REPORT INFORMATION
  Report Type: Spontaneous
  Country: US (occurrence: US)
  Receive Date: 20240510
  Receipt Date: 20240510
  Transmission Date: 20240716
  Serious: No
  Sender: FDA-Public Use
  Company Number: US-TEVA-2023-US-2885447

PATIENT
  Age: 75 Year
  Sex: Female

DRUGS (5)
  1. AUSTEDO XR [Suspect]
     Active Substance: DEUTETRABENAZINE
     Indication: Chorea
     Dosage: 12 MG + 24 MG TABLET FOR A TOTAL OF 36 MG, DAILY
     Route: 065
  2. AUSTEDO XR [Suspect]
     Active Substance: DEUTETRABENAZINE
     Indication: Chorea
     Dosage: 12 MG + 24 MG TAB FOR A TOTAL OF 36 MG, DAILY
     Route: 065
  3. AUSTEDO [Suspect]
     Active Substance: DEUTETRABENAZINE
     Indication: Tardive dyskinesia
     Dosage: DOSAGE TEXT: 15 MG (6MG TABLET + 9MG TABLET) TWICE A DAY
     Route: 048
     Dates: start: 20230320
  4. EFFEXOR [Concomitant]
     Active Substance: VENLAFAXINE HYDROCHLORIDE
  5. WELLBUTRIN [Concomitant]
     Active Substance: BUPROPION HYDROCHLORIDE

REACTIONS (3)
  - Somnolence [Unknown]
  - Lethargy [Unknown]
  - Confusional state [Unknown]

NARRATIVE: CASE EVENT DATE: 20230101
